FAERS Safety Report 25997565 (Version 1)
Quarter: 2025Q4

REPORT INFORMATION
  Report Type: Spontaneous
  Country: EU (occurrence: EU)
  Receive Date: 20251104
  Receipt Date: 20251104
  Transmission Date: 20260118
  Serious: Yes (Hospitalization, Other)
  Sender: BRISTOL-MYERS SQUIBB COMPANY
  Company Number: EU-ROCHE-10000124848

PATIENT
  Age: 51 Year
  Sex: Female
  Weight: 66 kg

DRUGS (19)
  1. PACLITAXEL [Suspect]
     Active Substance: PACLITAXEL
     Indication: Triple negative breast cancer
     Dosage: ON 14-JAN-2025, SHE RECEIVED THE LAST DOSE OF NAB PACLITAXEL (130 MG)
     Route: 042
     Dates: start: 20141015, end: 20250114
  2. ATEZOLIZUMAB [Suspect]
     Active Substance: ATEZOLIZUMAB
     Indication: Triple negative breast cancer
     Dosage: ON 31-DEC-2024, SHE RECEIVED THE LAST DOSE OF ATEZOLIZUMAB (1200 MG)?ON 04-MAR-2025, SHE RECEIVED THE LAST DOSE OF ATEZOLIZUMAB (1200 MG)
     Route: 042
     Dates: start: 20241015, end: 20241231
  3. ATEZOLIZUMAB [Suspect]
     Active Substance: ATEZOLIZUMAB
     Dosage: ON 31-DEC-2024, SHE RECEIVED THE LAST DOSE OF ATEZOLIZUMAB (1200 MG)?ON 04-MAR-2025, SHE RECEIVED THE LAST DOSE OF ATEZOLIZUMAB (1200 MG)
     Route: 042
     Dates: end: 20250304
  4. TIRAGOLUMAB [Suspect]
     Active Substance: TIRAGOLUMAB
     Indication: Triple negative breast cancer
     Dosage: ON 31-DEC-2024, SHE RECEIVED THE LAST DOSE OF TIRAGOLUMAB(600 MG)?ON 04-MAR-2025, SHE RECEIVED THE LAST DOSE OF TIRAGOLUMAB(600 MG)
     Route: 042
     Dates: start: 20241015, end: 20241231
  5. TIRAGOLUMAB [Suspect]
     Active Substance: TIRAGOLUMAB
     Dosage: ON 31-DEC-2024, SHE RECEIVED THE LAST DOSE OF TIRAGOLUMAB(600 MG)?ON 04-MAR-2025, SHE RECEIVED THE LAST DOSE OF TIRAGOLUMAB(600 MG)
     Route: 042
     Dates: end: 20250304
  6. CARBOPLATIN [Suspect]
     Active Substance: CARBOPLATIN
     Indication: Triple negative breast cancer
     Dosage: AUC 5, ON 31-DEC-2024, RECEIVED THE LAST DOSE OF CARBOPLATIN (570 MG)
     Route: 042
     Dates: start: 20241015, end: 20241231
  7. AKYNZEO (NETUPITANT\PALONOSETRON HYDROCHLORIDE) [Concomitant]
     Active Substance: NETUPITANT\PALONOSETRON HYDROCHLORIDE
     Indication: Product used for unknown indication
     Route: 048
  8. PREDNISONE [Concomitant]
     Active Substance: PREDNISONE
     Indication: Product used for unknown indication
     Route: 048
  9. BILASTINE [Concomitant]
     Active Substance: BILASTINE
     Indication: Product used for unknown indication
     Dosage: IN THE EVENING
     Route: 048
  10. BILASTINE [Concomitant]
     Active Substance: BILASTINE
     Dates: start: 20250130, end: 20250301
  11. INNOHEP [Concomitant]
     Active Substance: TINZAPARIN SODIUM
     Indication: Product used for unknown indication
     Route: 042
     Dates: start: 20250121, end: 20250220
  12. INNOHEP [Concomitant]
     Active Substance: TINZAPARIN SODIUM
     Dates: start: 20250130, end: 20250220
  13. INNOHEP [Concomitant]
     Active Substance: TINZAPARIN SODIUM
     Dosage: 12000 IU/D SC
     Route: 058
  14. LANSOPRAZOLE [Concomitant]
     Active Substance: LANSOPRAZOLE
     Indication: Product used for unknown indication
     Route: 048
  15. LANSOPRAZOLE [Concomitant]
     Active Substance: LANSOPRAZOLE
     Route: 048
  16. PANTOPRAZOLE [Concomitant]
     Active Substance: PANTOPRAZOLE
     Indication: Product used for unknown indication
  17. CEFAZOLIN [Concomitant]
     Active Substance: CEFAZOLIN
     Indication: Product used for unknown indication
     Route: 042
  18. DOLIPRANE [Concomitant]
     Active Substance: ACETAMINOPHEN
     Indication: Product used for unknown indication
     Dates: start: 20250130, end: 20250301
  19. ACETAMINOPHEN [Concomitant]
     Active Substance: ACETAMINOPHEN
     Indication: Product used for unknown indication
     Dosage: AS NEEDED

REACTIONS (6)
  - Implant site infection [Recovered/Resolved]
  - Device related infection [Recovered/Resolved]
  - Bacteraemia [Recovered/Resolved]
  - Toxic skin eruption [Recovered/Resolved]
  - Pyrexia [Not Recovered/Not Resolved]
  - Sepsis [Not Recovered/Not Resolved]

NARRATIVE: CASE EVENT DATE: 20241024
